FAERS Safety Report 11273299 (Version 3)
Quarter: 2015Q3

REPORT INFORMATION
  Report Type: Spontaneous
  Country: US (occurrence: US)
  Receive Date: 20150715
  Receipt Date: 20150903
  Transmission Date: 20151125
  Serious: Yes (Other)
  Sender: FDA-Public Use
  Company Number: US-BAYER-2015-378430

PATIENT
  Age: 36 Year
  Sex: Female
  Weight: 87.98 kg

DRUGS (1)
  1. MIRENA [Suspect]
     Active Substance: LEVONORGESTREL
     Indication: CONTRACEPTION
     Dosage: 20 MCG/24HR, CONT
     Route: 015
     Dates: start: 20150511, end: 20150711

REACTIONS (9)
  - Anovulatory cycle [None]
  - Polycystic ovaries [None]
  - Dyspareunia [None]
  - Endometrial thickening [None]
  - Abdominal pain lower [None]
  - Discomfort [None]
  - Genital haemorrhage [None]
  - Procedural pain [None]
  - Embedded device [Recovered/Resolved]

NARRATIVE: CASE EVENT DATE: 2015
